FAERS Safety Report 16516069 (Version 5)
Quarter: 2019Q3

REPORT INFORMATION
  Report Type: Spontaneous
  Country: US (occurrence: US)
  Receive Date: 20190702
  Receipt Date: 20190902
  Transmission Date: 20191004
  Serious: Yes (Hospitalization)
  Sender: FDA-Public Use
  Company Number: US-PFIZER INC-2019277071

PATIENT
  Age: 33 Year
  Sex: Male
  Weight: 83.58 kg

DRUGS (5)
  1. SODIUM BICARBONATE. [Suspect]
     Active Substance: SODIUM BICARBONATE
     Indication: LOCAL ANAESTHESIA
     Dosage: UNK (FTV SDV 8.4% 1MEQ/ML 50ML)
  2. LIDOCAIN [LIDOCAINE] [Concomitant]
     Dosage: UNK
  3. SODIUM BICARBONATE. [Suspect]
     Active Substance: SODIUM BICARBONATE
     Indication: MEDICAL DEVICE IMPLANTATION
     Dosage: UNK (2-4 ML)
     Dates: start: 20181218
  4. LIDOCAINE HYDROCHLORIDE AND EPINEPHRINE [Concomitant]
     Active Substance: EPINEPHRINE\LIDOCAINE HYDROCHLORIDE
     Dosage: UNK
     Dates: start: 20181218
  5. LIDOCAIN [LIDOCAINE] [Concomitant]
     Dosage: UNK

REACTIONS (4)
  - Emotional disorder [Unknown]
  - Product contamination physical [Unknown]
  - Poor quality product administered [Unknown]
  - Injection site pain [Not Recovered/Not Resolved]

NARRATIVE: CASE EVENT DATE: 2019
